FAERS Safety Report 4647515-9 (Version None)
Quarter: 2005Q2

REPORT INFORMATION
  Report Type: 
  Country: None (occurrence: None)
  Receive Date: 20050428
  Receipt Date: 20041018
  Transmission Date: 20051028
  Serious: Yes (Death, Life-Threatening, Hospitalization)
  Sender: FDA-Public Use
  Company Number: PL-ROCHE-383789

PATIENT
  Age: 57 Year
  Sex: Male
  Weight: 85 kg

DRUGS (5)
  1. CYMEVENE [Suspect]
     Route: 042
     Dates: start: 20041015, end: 20041015
  2. PROGRAF [Concomitant]
     Indication: TRANSPLANT REJECTION
     Route: 048
     Dates: start: 20030409, end: 20041019
  3. IMURAN [Concomitant]
     Indication: TRANSPLANT REJECTION
     Route: 048
     Dates: start: 20030409, end: 20041015
  4. SOLU-MEDROL [Concomitant]
     Indication: TRANSPLANT REJECTION
     Dosage: GIVEN AS PULSE THERAPY OF 3 X 0.5MG
     Route: 042
     Dates: start: 20041013, end: 20041015
  5. CELLCEPT [Concomitant]
     Dosage: DISCONTINUED 1 OR 2 DAYS BEFORE RECEIVING GANCICLOVIR
     Dates: end: 20041015

REACTIONS (31)
  - AGITATION [None]
  - ANXIETY [None]
  - BLOOD PRESSURE DECREASED [None]
  - BONE MARROW DEPRESSION [None]
  - CARDIAC ARREST [None]
  - CARDIAC DISORDER [None]
  - CARDIOMEGALY [None]
  - CARDIOPULMONARY FAILURE [None]
  - DRUG TOXICITY [None]
  - DYSPNOEA [None]
  - GENERAL PHYSICAL HEALTH DETERIORATION [None]
  - GLASGOW COMA SCALE ABNORMAL [None]
  - GLOMERULONEPHRITIS FOCAL [None]
  - HAEMODIALYSIS [None]
  - HEPATIC STEATOSIS [None]
  - KUSSMAUL RESPIRATION [None]
  - LACTIC ACIDOSIS [None]
  - LIPOMATOSIS [None]
  - LOSS OF CONSCIOUSNESS [None]
  - METABOLIC ACIDOSIS [None]
  - MULTI-ORGAN FAILURE [None]
  - MYOCARDIAL FIBROSIS [None]
  - MYOCARDIAL INFARCTION [None]
  - NERVOUS SYSTEM DISORDER [None]
  - PANCYTOPENIA [None]
  - RENAL INFARCT [None]
  - RENAL NECROSIS [None]
  - RESTLESSNESS [None]
  - SCAR [None]
  - TACHYPNOEA [None]
  - THROMBOSIS IN DEVICE [None]
